FAERS Safety Report 8238613-1 (Version None)
Quarter: 2012Q1

REPORT INFORMATION
  Report Type: 
  Country: None (occurrence: None)
  Receive Date: 20120309
  Receipt Date: 20100223
  Transmission Date: 20120608
  Serious: No
  Sender: FDA-Public Use
  Company Number: PHHY2010US06626

PATIENT
  Age: 62 Year
  Sex: Male

DRUGS (5)
  1. ZOLOFT [Concomitant]
  2. PLAVIX [Concomitant]
  3. EXTAVIA [Suspect]
     Indication: MULTIPLE SCLEROSIS
     Dosage: 6.25 UG, QOD, SUBCUTANEOUS
     Route: 058
     Dates: start: 20100130
  4. TYLENOL PRN (PARACETAMOL) [Concomitant]
  5. PEREDNSINE [Concomitant]

REACTIONS (3)
  - RESTLESS LEGS SYNDROME [None]
  - LIMB DISCOMFORT [None]
  - INSOMNIA [None]
